FAERS Safety Report 19222255 (Version 1)
Quarter: 2021Q2

REPORT INFORMATION
  Report Type: Spontaneous
  Country: US (occurrence: US)
  Receive Date: 20210506
  Receipt Date: 20210506
  Transmission Date: 20210717
  Serious: No
  Sender: FDA-Public Use
  Company Number: None

PATIENT
  Age: 88 Year
  Sex: Male

DRUGS (1)
  1. NAPROXEN (NAPROXEN 375MG TAB) [Suspect]
     Active Substance: NAPROXEN
     Indication: PAIN
     Dates: start: 20190826, end: 20210224

REACTIONS (1)
  - Peptic ulcer [None]

NARRATIVE: CASE EVENT DATE: 20210222
